FAERS Safety Report 7118851-1 (Version None)
Quarter: 2010Q4

REPORT INFORMATION
  Report Type: 
  Country: None (occurrence: None)
  Receive Date: 20101123
  Receipt Date: 20101007
  Transmission Date: 20110411
  Serious: No
  Sender: FDA-Public Use
  Company Number: US-KINGPHARMUSA00001-K201001265

PATIENT
  Age: 73 Year
  Sex: Male
  Weight: 83.9 kg

DRUGS (4)
  1. FLECTOR [Suspect]
     Indication: ARTHRALGIA
     Dosage: 1 PATCH, SINGLE, 6-7H
     Route: 061
     Dates: start: 20101006, end: 20101006
  2. FLECTOR [Suspect]
     Indication: SCIATICA
  3. HYDROCODONE [Concomitant]
     Indication: BACK PAIN
     Route: 048
  4. MOTRIN [Concomitant]
     Dosage: 2 DF, Q4-5H
     Route: 048

REACTIONS (2)
  - ABDOMINAL PAIN UPPER [None]
  - ANORECTAL DISORDER [None]
